FAERS Safety Report 12788272 (Version 1)
Quarter: 2016Q3

REPORT INFORMATION
  Report Type: Spontaneous
  Country: JP (occurrence: JP)
  Receive Date: 20160928
  Receipt Date: 20160928
  Transmission Date: 20161109
  Serious: Yes (Other)
  Sender: FDA-Public Use
  Company Number: JP-BEH-200712303

PATIENT
  Age: 78 Year
  Sex: Male

DRUGS (4)
  1. ALBUMINAR-25 [Suspect]
     Active Substance: ALBUMIN HUMAN
     Indication: HYPOPHAGIA
  2. BFLUID [Concomitant]
     Active Substance: AMINO ACIDS\DEXTROSE\ELECTROLYTES NOS\VITAMINS
     Dosage: DAILY DOSE QUANTITY: 500, DAILY DOSE UNIT: ML
     Route: 042
     Dates: start: 20070628, end: 20070730
  3. NEOPAREN [Concomitant]
     Active Substance: AMINO ACIDS\DEXTROSE\ELECTROLYTES NOS
     Dosage: DAILY DOSE QUANTITY: 1000, DAILY DOSE UNIT: ML
     Route: 042
     Dates: start: 20070628, end: 20070730
  4. ALBUMINAR-25 [Suspect]
     Active Substance: ALBUMIN HUMAN
     Indication: MALNUTRITION
     Dosage: DAILY DOSE QUANTITY: 50, DAILY DOSE UNIT: ML
     Route: 042
     Dates: start: 20070725, end: 20070725

REACTIONS (2)
  - Shock [Recovered/Resolved]
  - Urticaria [Recovered/Resolved]

NARRATIVE: CASE EVENT DATE: 20070725
